FAERS Safety Report 16618362 (Version 1)
Quarter: 2019Q3

REPORT INFORMATION
  Report Type: Spontaneous
  Country: FR (occurrence: FR)
  Receive Date: 20190723
  Receipt Date: 20190723
  Transmission Date: 20191004
  Serious: Yes (Death)
  Sender: FDA-Public Use
  Company Number: FR-MYLANLABS-2019M1069177

PATIENT
  Age: 82 Year
  Sex: Male
  Weight: 101 kg

DRUGS (14)
  1. INEXIUM                            /01479302/ [Suspect]
     Active Substance: ESOMEPRAZOLE MAGNESIUM
     Indication: GASTROOESOPHAGEAL REFLUX DISEASE
     Dosage: UNK
     Route: 048
     Dates: end: 20180222
  2. TRANSIPEG                          /00754501/ [Suspect]
     Active Substance: POLYETHYLENE GLYCOL 3350
     Indication: CONSTIPATION
     Dosage: 1 DOSAGE FORM, QD
     Route: 048
     Dates: end: 20180222
  3. ELUDRIL                            /02860401/ [Suspect]
     Active Substance: CHLORHEXIDINE GLUCONATE\CHLOROBUTANOL
     Indication: ORAL DISORDER
     Dosage: 2 DOSAGE FORM, QD
     Route: 048
     Dates: end: 20180222
  4. INNOHEP [Suspect]
     Active Substance: TINZAPARIN SODIUM
     Indication: ATRIAL FIBRILLATION
     Dosage: 16000 INTERNATIONAL UNIT, QD
     Route: 058
     Dates: start: 20180215, end: 20180222
  5. AERIUS (DESLORATADINE) [Suspect]
     Active Substance: DESLORATADINE
     Indication: PRODUCT USED FOR UNKNOWN INDICATION
     Dosage: 1 DOSAGE FORM, QD
     Route: 048
     Dates: end: 20180222
  6. SERETIDE [Suspect]
     Active Substance: FLUTICASONE PROPIONATE\SALMETEROL XINAFOATE
     Indication: CHRONIC OBSTRUCTIVE PULMONARY DISEASE
     Dosage: 2 DOSAGE FORM, QD
     Route: 055
     Dates: end: 20180222
  7. SPIRIVA [Suspect]
     Active Substance: TIOTROPIUM BROMIDE MONOHYDRATE
     Indication: CHRONIC OBSTRUCTIVE PULMONARY DISEASE
     Dosage: 2 DOSAGE FORM, QD
     Route: 048
     Dates: end: 20180222
  8. TAHOR [Suspect]
     Active Substance: ATORVASTATIN CALCIUM
     Indication: HYPERCHOLESTEROLAEMIA
     Dosage: 1 DOSAGE FORM, QD
     Route: 048
  9. GLUCOPHAGE [Suspect]
     Active Substance: METFORMIN HYDROCHLORIDE
     Indication: TYPE 2 DIABETES MELLITUS
     Dosage: 2 DOSAGE FORM, QD
     Route: 048
     Dates: end: 20180222
  10. UVEDOSE [Suspect]
     Active Substance: CHOLECALCIFEROL
     Indication: VITAMIN D DEFICIENCY
     Dosage: UNK
     Route: 048
     Dates: end: 20180222
  11. LOPERAMIDE [Suspect]
     Active Substance: LOPERAMIDE
     Indication: PRODUCT USED FOR UNKNOWN INDICATION
     Dosage: 2 MILLIGRAM
     Route: 048
     Dates: end: 20180222
  12. TIAPRIDAL [Suspect]
     Active Substance: TIAPRIDE HYDROCHLORIDE
     Indication: PRODUCT USED FOR UNKNOWN INDICATION
     Dosage: 1 DOSAGE FORM, QD
     Route: 048
     Dates: end: 20180222
  13. LAMALINE (CAFFEINE\PARACETAMOL\ATROPA BELLADONNA EXTRACT\PAPAVER SOMNIFERUM TINCTURE) [Suspect]
     Active Substance: ACETAMINOPHEN\BELLADONNA LEAF\CAFFEINE\OPIUM
     Indication: PAIN
     Dosage: 3 DOSAGE FORM, QD
     Route: 048
     Dates: end: 20180222
  14. DOLIPRANE [Suspect]
     Active Substance: ACETAMINOPHEN
     Indication: PAIN
     Dosage: 3 DOSAGE FORM, QD
     Route: 048
     Dates: end: 20180222

REACTIONS (2)
  - Hepatic haematoma [Fatal]
  - Anaemia [Fatal]

NARRATIVE: CASE EVENT DATE: 20180222
